FAERS Safety Report 8595312-4 (Version None)
Quarter: 2012Q3

REPORT INFORMATION
  Report Type: 
  Country: None (occurrence: None)
  Receive Date: 20120815
  Receipt Date: 20120809
  Transmission Date: 20120928
  Serious: Yes (Other)
  Sender: FDA-Public Use
  Company Number: US-PFIZER INC-2012144892

PATIENT
  Age: 63 Year
  Sex: Male

DRUGS (9)
  1. LYRICA [Suspect]
     Indication: PAIN
     Dosage: 225 MG, 3X/DAY
     Route: 048
  2. NEURONTIN [Suspect]
     Indication: PAIN
     Dosage: 300 MG, 3X/DAY
  3. LYRICA [Suspect]
     Indication: HEARING IMPAIRED
  4. NEURONTIN [Suspect]
     Indication: HEARING IMPAIRED
     Dosage: UNK
  5. NEURONTIN [Suspect]
  6. TRAMADOL [Suspect]
     Dosage: 100 MG, 3X/DAY
  7. NEURONTIN [Suspect]
     Indication: NEUROPATHY PERIPHERAL
     Dosage: UNK
  8. LYRICA [Suspect]
     Indication: NEUROPATHY PERIPHERAL
     Dosage: 75 MG, 3X/DAY
     Route: 048
  9. LYRICA [Suspect]
     Dosage: UNK

REACTIONS (10)
  - SUICIDAL IDEATION [None]
  - PAIN [None]
  - GAIT DISTURBANCE [None]
  - ACTIVITIES OF DAILY LIVING IMPAIRED [None]
  - ANGER [None]
  - PAIN IN EXTREMITY [None]
  - NEUROPATHY PERIPHERAL [None]
  - WITHDRAWAL SYNDROME [None]
  - LIMB DISCOMFORT [None]
  - DRUG EFFECT DECREASED [None]
